FAERS Safety Report 5637305-2 (Version None)
Quarter: 2008Q1

REPORT INFORMATION
  Report Type: 
  Country: None (occurrence: None)
  Receive Date: 20080225
  Receipt Date: 20070309
  Transmission Date: 20080703
  Serious: Yes (Death, Other)
  Sender: FDA-Public Use
  Company Number: US-PFIZER INC-2006098056

PATIENT

DRUGS (1)
  1. XALATAN [Suspect]

REACTIONS (2)
  - CATARACT [None]
  - DEATH [None]
